FAERS Safety Report 4427722-0 (Version None)
Quarter: 2004Q3

REPORT INFORMATION
  Report Type: 
  Country: None (occurrence: None)
  Receive Date: 20040812
  Receipt Date: 20040730
  Transmission Date: 20050211
  Serious: Yes (Life-Threatening, Hospitalization)
  Sender: FDA-Public Use
  Company Number: 04H-163-0268870-00

PATIENT
  Sex: Male
  Weight: 3.5 kg

DRUGS (4)
  1. POTASSIUM CHLORIDE 500MEQ TOTAL FOR INJ, USP, 250ML PHARM BULK [Suspect]
     Indication: HYPOKALAEMIA
     Dosage: 35 MILLIEQUIVALENTS,
     Dates: start: 20040301, end: 20040301
  2. AMPICILLIN [Concomitant]
  3. GENTAMYCIN SULFATE [Concomitant]
  4. INTRAVENOUS FLUIDS [Concomitant]

REACTIONS (3)
  - CEREBRAL THROMBOSIS [None]
  - MEDICATION ERROR [None]
  - VENTRICULAR TACHYCARDIA [None]
